FAERS Safety Report 8848158 (Version 4)
Quarter: 2012Q4

REPORT INFORMATION
  Report Type: 
  Country: FR (occurrence: FR)
  Receive Date: 20121018
  Receipt Date: 20121113
  Transmission Date: 20130627
  Serious: Yes (Hospitalization, Other)
  Sender: FDA-Public Use
  Company Number: FR-PFIZER INC-2012257914

PATIENT
  Age: 79 Year
  Sex: Female

DRUGS (4)
  1. CORDARONE [Suspect]
     Dosage: UNK , Daily
     Route: 048
     Dates: start: 20120630
  2. KARDEGIC [Interacting]
     Dosage: UNK
     Route: 048
     Dates: start: 2009
  3. KARDEGIC [Interacting]
     Dosage: 1 DF, 1x/day
     Route: 048
     Dates: start: 201206, end: 20120925
  4. PRADAXA [Interacting]
     Dosage: 220 mg, daily
     Route: 048
     Dates: start: 20120630, end: 20120925

REACTIONS (7)
  - Drug interaction [Unknown]
  - Overdose [Unknown]
  - Renal failure [Recovering/Resolving]
  - Rectal haemorrhage [Recovering/Resolving]
  - Anaemia [Unknown]
  - Dyspnoea [Unknown]
  - Colon neoplasm [Unknown]
